FAERS Safety Report 13864941 (Version 2)
Quarter: 2020Q1

REPORT INFORMATION
  Report Type: Report from Study
  Country: DE (occurrence: DE)
  Receive Date: 20170814
  Receipt Date: 20200116
  Transmission Date: 20200409
  Serious: Yes (Hospitalization)
  Sender: FDA-Public Use
  Company Number: DE-CELGENEUS-DEU-20170709706

PATIENT
  Age: 61 Year
  Sex: Male

DRUGS (2)
  1. ABRAXANE [Suspect]
     Active Substance: PACLITAXEL
     Indication: PANCREATIC CARCINOMA METASTATIC
     Dosage: 100 MILLIGRAM/SQ. METER
     Route: 041
     Dates: start: 20161217, end: 20170403
  2. GEMCITABINE. [Suspect]
     Active Substance: GEMCITABINE
     Indication: PANCREATIC CARCINOMA METASTATIC
     Route: 065

REACTIONS (1)
  - Urinary retention [Recovered/Resolved]

NARRATIVE: CASE EVENT DATE: 20170412
